FAERS Safety Report 7391724-5 (Version None)
Quarter: 2011Q2

REPORT INFORMATION
  Report Type: 
  Country: None (occurrence: None)
  Receive Date: 20110404
  Receipt Date: 20110324
  Transmission Date: 20111010
  Serious: Yes (Other)
  Sender: FDA-Public Use
  Company Number: GB-JNJFOC-20110310989

PATIENT
  Age: 50 Year
  Sex: Female

DRUGS (3)
  1. PAIN KILLERS [Concomitant]
     Indication: PAIN
  2. NICORETTE INVISIPATCH 25MG [Suspect]
     Route: 062
  3. NICORETTE INVISIPATCH 25MG [Suspect]
     Indication: SMOKING CESSATION THERAPY
     Dosage: HALF A PATCH
     Route: 062

REACTIONS (4)
  - ARTHRALGIA [None]
  - MUSCULOSKELETAL DISCOMFORT [None]
  - CONVULSION [None]
  - DRUG HYPERSENSITIVITY [None]
